FAERS Safety Report 8606134-X (Version None)
Quarter: 2012Q3

REPORT INFORMATION
  Report Type: 
  Country: None (occurrence: None)
  Receive Date: 20120820
  Receipt Date: 19950426
  Transmission Date: 20120928
  Serious: Yes (Hospitalization, Other)
  Sender: FDA-Public Use
  Company Number: US-ROCHE-1101277

PATIENT
  Sex: Female

DRUGS (1)
  1. ACTIVASE [Suspect]
     Indication: ACUTE MYOCARDIAL INFARCTION
     Dates: start: 19940413

REACTIONS (5)
  - MYOCARDIAL INFARCTION [None]
  - REPERFUSION ARRHYTHMIA [None]
  - LIMB DISCOMFORT [None]
  - BRADYCARDIA [None]
  - PULMONARY OEDEMA [None]
